FAERS Safety Report 8769816 (Version 2)
Quarter: 2012Q4

REPORT INFORMATION
  Report Type: 
  Country: US (occurrence: US)
  Receive Date: 20120905
  Receipt Date: 20120915
  Transmission Date: 20130627
  Serious: No
  Sender: FDA-Public Use
  Company Number: US-009507513-1207USA011671

PATIENT

DRUGS (4)
  1. REBETOL [Suspect]
     Indication: HEPATITIS C
     Dosage: UNK
     Route: 048
  2. REBETOL [Suspect]
     Dosage: UNK
     Route: 048
  3. PEGINTRON [Suspect]
     Indication: HEPATITIS C
  4. VICTRELIS [Suspect]
     Indication: HEPATITIS C

REACTIONS (6)
  - Increased upper airway secretion [Unknown]
  - Cheilitis [Unknown]
  - Dyspnoea [Unknown]
  - Red blood cell count decreased [Unknown]
  - Chest pain [Unknown]
  - Cough [Unknown]
